FAERS Safety Report 9300019 (Version 1)
Quarter: 2013Q2

REPORT INFORMATION
  Report Type: Spontaneous
  Country: US (occurrence: US)
  Receive Date: 20130521
  Receipt Date: 20130521
  Transmission Date: 20140414
  Serious: Yes (Hospitalization, Other)
  Sender: FDA-Public Use
  Company Number: US-JNJFOC-20130503120

PATIENT
  Age: 73 Year
  Sex: Female
  Weight: 72.58 kg

DRUGS (24)
  1. DURAGESIC [Suspect]
     Indication: SCIATICA
     Route: 062
     Dates: start: 201304
  2. DURAGESIC [Suspect]
     Indication: SCIATICA
     Route: 062
     Dates: start: 1991
  3. DURAGESIC [Suspect]
     Indication: PAIN
     Route: 062
     Dates: start: 201304
  4. DURAGESIC [Suspect]
     Indication: PAIN
     Route: 062
     Dates: start: 1991
  5. DURAGESIC [Suspect]
     Indication: COMPLEX REGIONAL PAIN SYNDROME
     Route: 062
     Dates: start: 201304
  6. DURAGESIC [Suspect]
     Indication: COMPLEX REGIONAL PAIN SYNDROME
     Route: 062
     Dates: start: 1991
  7. DURAGESIC [Suspect]
     Indication: EXOSTOSIS
     Route: 062
     Dates: start: 201304
  8. DURAGESIC [Suspect]
     Indication: EXOSTOSIS
     Route: 062
     Dates: start: 1991
  9. DURAGESIC [Suspect]
     Indication: FIBROMYALGIA
     Route: 062
     Dates: start: 1991
  10. DURAGESIC [Suspect]
     Indication: FIBROMYALGIA
     Route: 062
     Dates: start: 201304
  11. PREDNISONE [Suspect]
     Indication: RESPIRATORY DISORDER
     Route: 048
  12. LEVOXYL [Concomitant]
     Indication: THYROID DISORDER
     Dosage: 6 DAYS A WEEK
     Route: 048
  13. ESTRADIOL [Concomitant]
     Indication: HORMONE LEVEL ABNORMAL
     Route: 048
     Dates: start: 1972
  14. ZOLOFT [Concomitant]
     Indication: DEPRESSION
     Route: 048
     Dates: start: 1985
  15. AMBIEN [Concomitant]
     Indication: SLEEP DISORDER
     Dosage: 1 PER NIGHT
     Route: 048
  16. BENICAR [Concomitant]
     Indication: CARDIAC DISORDER
     Route: 048
  17. MICRO K [Concomitant]
     Indication: BLOOD POTASSIUM ABNORMAL
     Dosage: 10 LM TWICE A DAY
     Route: 048
  18. ZETIA [Concomitant]
     Indication: BLOOD CHOLESTEROL ABNORMAL
     Route: 048
  19. NEURONTIN [Concomitant]
     Indication: NEURALGIA
     Dosage: 600 MG HALF TABLET PM AND 600 MG WHOLE TABLET AM
     Route: 048
  20. DIHYDROMORPHINE [Concomitant]
     Indication: BREAKTHROUGH PAIN
     Route: 048
     Dates: start: 2010
  21. ATORVASTATIN [Concomitant]
     Indication: CARDIAC DISORDER
     Route: 048
     Dates: start: 2012
  22. AZMACORT [Concomitant]
     Indication: CHRONIC OBSTRUCTIVE PULMONARY DISEASE
     Dosage: 2 PUFFS TWICE A DAY
     Route: 048
  23. ALBUTEROL [Concomitant]
     Indication: CHRONIC OBSTRUCTIVE PULMONARY DISEASE
     Route: 048
  24. SINGULAIR [Concomitant]
     Indication: NASAL CONGESTION
     Dosage: IN NIGHT
     Route: 048

REACTIONS (13)
  - Psychotic disorder [Unknown]
  - Chronic obstructive pulmonary disease [Not Recovered/Not Resolved]
  - Pneumonia [Unknown]
  - Pulmonary oedema [Unknown]
  - Hernia [Not Recovered/Not Resolved]
  - Aspiration [Recovered/Resolved]
  - Gastrooesophageal reflux disease [Unknown]
  - Product quality issue [Unknown]
  - Sleep apnoea syndrome [Not Recovered/Not Resolved]
  - Pain [Not Recovered/Not Resolved]
  - Insomnia [Not Recovered/Not Resolved]
  - Dermatitis contact [Unknown]
  - Wrong technique in drug usage process [Unknown]
